FAERS Safety Report 14531841 (Version 1)
Quarter: 2018Q1

REPORT INFORMATION
  Report Type: Spontaneous
  Country: DE (occurrence: DE)
  Receive Date: 20180214
  Receipt Date: 20180214
  Transmission Date: 20180509
  Serious: Yes (Hospitalization)
  Sender: FDA-Public Use
  Company Number: DE-MYLANLABS-2018M1009515

PATIENT
  Age: 52 Year
  Sex: Male

DRUGS (6)
  1. VORICONAZOLE. [Suspect]
     Active Substance: VORICONAZOLE
     Indication: ATYPICAL PNEUMONIA
     Dosage: 800 MG, QD
     Route: 048
  2. CIPROFLOXACIN. [Concomitant]
     Active Substance: CIPROFLOXACIN
     Indication: ATYPICAL PNEUMONIA
     Dosage: 800 MG, QD
     Route: 048
  3. IMIPENEM [Concomitant]
     Active Substance: IMIPENEM
     Indication: ATYPICAL PNEUMONIA
     Dosage: 2000 MG, QD
     Route: 042
  4. LEVETIRACETAM. [Concomitant]
     Active Substance: LEVETIRACETAM
     Indication: SEIZURE
     Dosage: UNK
     Route: 065
  5. MEROPENEM. [Suspect]
     Active Substance: MEROPENEM
     Indication: NOSOCOMIAL INFECTION
     Dosage: 3 G, QD
     Route: 065
  6. LINEZOLID. [Suspect]
     Active Substance: LINEZOLID
     Indication: NOSOCOMIAL INFECTION
     Dosage: 1200 MG, QD
     Route: 065

REACTIONS (2)
  - No adverse event [Unknown]
  - Drug ineffective [Unknown]
